FAERS Safety Report 16010470 (Version 1)
Quarter: 2019Q1

REPORT INFORMATION
  Report Type: Spontaneous
  Country: US (occurrence: US)
  Receive Date: 20190225
  Receipt Date: 20190225
  Transmission Date: 20190418
  Serious: Yes (Hospitalization)
  Sender: FDA-Public Use
  Company Number: US-PHARMING-PHAUS2019000136

PATIENT

DRUGS (37)
  1. NUVARING [Concomitant]
     Active Substance: ETHINYL ESTRADIOL\ETONOGESTREL
  2. LINZESS [Concomitant]
     Active Substance: LINACLOTIDE
  3. PEPCID [Concomitant]
     Active Substance: FAMOTIDINE
  4. NASACORT [Concomitant]
     Active Substance: TRIAMCINOLONE ACETONIDE
  5. SERETAIDE DISKUS [Concomitant]
  6. MULTI-VITAMINS VITAFIT [Concomitant]
     Active Substance: VITAMINS
  7. GAMMAGARD [Concomitant]
     Active Substance: HUMAN IMMUNOGLOBULIN G
  8. VITAMIN D3 [Concomitant]
     Active Substance: CHOLECALCIFEROL
  9. DOXEPIN [Concomitant]
     Active Substance: DOXEPIN
  10. TPN ELECTROLYTES [Concomitant]
     Active Substance: CALCIUM CHLORIDE\MAGNESIUM CHLORIDE\POTASSIUM CHLORIDE\SODIUM ACETATE ANHYDROUS\SODIUM CHLORIDE
  11. ZYRTEC [Concomitant]
     Active Substance: CETIRIZINE HYDROCHLORIDE
  12. SULFAMETHOXAZOLE AND TRIMETHOPRIM [Concomitant]
     Active Substance: SULFAMETHOXAZOLE\TRIMETHOPRIM
  13. MONTELUKAST [Concomitant]
     Active Substance: MONTELUKAST SODIUM
  14. ALENDRONATE SODIUM. [Concomitant]
     Active Substance: ALENDRONATE SODIUM
  15. CLONIDINE. [Concomitant]
     Active Substance: CLONIDINE
  16. METHYLPREDNISOLONE. [Concomitant]
     Active Substance: METHYLPREDNISOLONE
  17. MYCOPHENOLATE MOFETIL. [Concomitant]
     Active Substance: MYCOPHENOLATE MOFETIL
  18. CYMBALTA [Concomitant]
     Active Substance: DULOXETINE HYDROCHLORIDE
  19. BUSPIRONE [Concomitant]
     Active Substance: BUSPIRONE HYDROCHLORIDE
  20. CROMOLYN [Concomitant]
     Active Substance: CROMOLYN
  21. IMATINIB MESYLATE. [Concomitant]
     Active Substance: IMATINIB MESYLATE
  22. COMPLEX B-50 [Concomitant]
  23. EPIPEN [Concomitant]
     Active Substance: EPINEPHRINE
  24. NOVAFERRUM [Concomitant]
     Active Substance: ASCORBIC ACID\FOLIC ACID\IRON
  25. CORLANOR [Concomitant]
     Active Substance: IVABRADINE HYDROCHLORIDE
  26. PHOSPHA [Concomitant]
  27. POTASSIUM CHLORIDE. [Concomitant]
     Active Substance: POTASSIUM CHLORIDE
  28. RUCONEST [Suspect]
     Active Substance: HUMAN C1-ESTERASE INHIBITOR
     Indication: HEREDITARY ANGIOEDEMA
     Dosage: 2100 IU, AS NEEDED
     Route: 042
     Dates: start: 20190122
  29. HYDROXYCHLOROQUINE SULFATE. [Concomitant]
     Active Substance: HYDROXYCHLOROQUINE SULFATE
  30. DIPHENHYDRAMIN [Concomitant]
     Active Substance: DIPHENHYDRAMINE
  31. MESTINON [Concomitant]
     Active Substance: PYRIDOSTIGMINE BROMIDE
  32. ONDANSETRON [Concomitant]
     Active Substance: ONDANSETRON
  33. IRON [Concomitant]
     Active Substance: IRON
  34. METHOTREXATE. [Concomitant]
     Active Substance: METHOTREXATE
  35. ADVAIR HFA [Concomitant]
     Active Substance: FLUTICASONE PROPIONATE\SALMETEROL XINAFOATE
  36. XOPENEX [Concomitant]
     Active Substance: LEVALBUTEROL HYDROCHLORIDE
  37. CULTURELLE [Concomitant]
     Active Substance: LACTOBACILLUS RHAMNOSUS

REACTIONS (1)
  - Urinary tract infection [Unknown]
